FAERS Safety Report 10217833 (Version 2)
Quarter: 2014Q3

REPORT INFORMATION
  Report Type: Spontaneous
  Country: US (occurrence: US)
  Receive Date: 20140604
  Receipt Date: 20140929
  Transmission Date: 20150326
  Serious: No
  Sender: FDA-Public Use
  Company Number: US-GILEAD-2014-0104235

PATIENT
  Age: 47 Year
  Sex: Female

DRUGS (3)
  1. TYVASO [Concomitant]
     Active Substance: TREPROSTINIL
  2. LETAIRIS [Suspect]
     Active Substance: AMBRISENTAN
     Indication: CONNECTIVE TISSUE DISORDER
  3. LETAIRIS [Suspect]
     Active Substance: AMBRISENTAN
     Indication: PULMONARY HYPERTENSION
     Dosage: 10 MG, QD
     Route: 065
     Dates: start: 20140428

REACTIONS (3)
  - Pain of skin [Not Recovered/Not Resolved]
  - Hot flush [Not Recovered/Not Resolved]
  - Flushing [Not Recovered/Not Resolved]
